FAERS Safety Report 5314256-4 (Version None)
Quarter: 2007Q2

REPORT INFORMATION
  Report Type: 
  Country: None (occurrence: None)
  Receive Date: 20070425
  Receipt Date: 20070418
  Transmission Date: 20071010
  Serious: Yes (Hospitalization)
  Sender: FDA-Public Use
  Company Number: S07-USA-01671-01

PATIENT
  Age: 28 Year
  Sex: Male

DRUGS (1)
  1. LEXAPRO [Suspect]
     Indication: ANXIETY
     Dosage: 5 MG QD PO
     Route: 048
     Dates: start: 20050818, end: 20050823

REACTIONS (7)
  - ENERGY INCREASED [None]
  - FEELING ABNORMAL [None]
  - GRANDIOSITY [None]
  - HYPOMANIA [None]
  - MANIA [None]
  - PSYCHOTIC DISORDER [None]
  - THINKING ABNORMAL [None]
